FAERS Safety Report 25978823 (Version 1)
Quarter: 2025Q4

REPORT INFORMATION
  Report Type: Report from Study
  Country: PK (occurrence: PK)
  Receive Date: 20251030
  Receipt Date: 20251030
  Transmission Date: 20260119
  Serious: Yes (Death)
  Sender: ROCHE
  Company Number: PK-ROCHE-10000421657

PATIENT
  Age: 87 Year
  Sex: Male

DRUGS (1)
  1. RITUXIMAB [Suspect]
     Active Substance: RITUXIMAB
     Indication: Diffuse large B-cell lymphoma
     Route: 042
     Dates: start: 20250708

REACTIONS (3)
  - Metastasis [Fatal]
  - Respiratory failure [Fatal]
  - Swelling [Unknown]

NARRATIVE: CASE EVENT DATE: 20250915
